FAERS Safety Report 7212431-5 (Version None)
Quarter: 2011Q1

REPORT INFORMATION
  Report Type: 
  Country: None (occurrence: None)
  Receive Date: 20110106
  Receipt Date: 20101227
  Transmission Date: 20110831
  Serious: Yes (Life-Threatening)
  Sender: FDA-Public Use
  Company Number: JP-SANOFI-AVENTIS-2010SA042873

PATIENT
  Age: 69 Year
  Sex: Male
  Weight: 63 kg

DRUGS (20)
  1. 5-FU [Concomitant]
     Route: 041
     Dates: start: 20090825, end: 20090825
  2. POLARAMINE [Concomitant]
     Indication: PREMEDICATION
     Route: 041
     Dates: start: 20100427, end: 20100427
  3. 5-FU [Concomitant]
     Route: 041
     Dates: start: 20090519, end: 20090519
  4. 5-FU [Concomitant]
     Route: 041
     Dates: start: 20090907, end: 20090907
  5. DAIKENTYUTO [Concomitant]
     Indication: CONSTIPATION PROPHYLAXIS
     Route: 048
     Dates: start: 20080510
  6. 5-FU [Concomitant]
     Indication: COLON CANCER
     Route: 040
     Dates: start: 20090519, end: 20090519
  7. 5-FU [Concomitant]
     Route: 040
     Dates: start: 20090907, end: 20090907
  8. 5-FU [Concomitant]
     Route: 040
     Dates: start: 20100330, end: 20100330
  9. CALCIUM LEVOFOLINATE [Concomitant]
     Route: 041
     Dates: start: 20090907, end: 20090907
  10. OXALIPLATIN [Suspect]
     Indication: COLON CANCER
     Route: 041
     Dates: start: 20090519, end: 20090519
  11. OXALIPLATIN [Suspect]
     Route: 041
     Dates: start: 20100427, end: 20100427
  12. DEXAMETHASONE SODIUM PHOSPHATE [Concomitant]
     Indication: PREMEDICATION
     Route: 041
     Dates: start: 20090519, end: 20100427
  13. AMLODIPINE BESYLATE [Concomitant]
     Indication: HYPERTENSION
     Route: 048
     Dates: start: 20091124
  14. H2-RECEPTOR ANTAGONISTS [Concomitant]
     Indication: PREMEDICATION
     Route: 041
     Dates: start: 20100427, end: 20100427
  15. CALCIUM LEVOFOLINATE [Concomitant]
     Route: 041
     Dates: start: 20100427, end: 20100427
  16. 5-FU [Concomitant]
     Route: 040
     Dates: start: 20090825, end: 20090825
  17. 5-FU [Concomitant]
     Route: 041
     Dates: start: 20100330, end: 20100330
  18. CALCIUM LEVOFOLINATE [Concomitant]
     Indication: COLON CANCER
     Route: 041
     Dates: start: 20090519, end: 20090519
  19. CALCIUM LEVOFOLINATE [Concomitant]
     Route: 041
     Dates: start: 20090825, end: 20090825
  20. GRANISETRON HYDROCHLORIDE [Concomitant]
     Indication: PREMEDICATION
     Route: 041
     Dates: start: 20090519, end: 20100427

REACTIONS (1)
  - ANAPHYLACTOID REACTION [None]
